FAERS Safety Report 5158405-X (Version None)
Quarter: 2006Q4

REPORT INFORMATION
  Report Type: 
  Country: None (occurrence: None)
  Receive Date: 20061128
  Receipt Date: 20061116
  Transmission Date: 20070319
  Serious: Yes (Hospitalization, Other)
  Sender: FDA-Public Use
  Company Number: PHFR2006GB03410

PATIENT
  Age: 53 Year
  Sex: Female

DRUGS (2)
  1. CLOZARIL [Suspect]
     Dosage: 200 MG SINGLE DOSE
     Route: 048
  2. RISPERIDONE [Concomitant]

REACTIONS (4)
  - ACCIDENTAL EXPOSURE [None]
  - DYSARTHRIA [None]
  - IRRITABILITY [None]
  - SOMNOLENCE [None]
